FAERS Safety Report 7367717-0 (Version None)
Quarter: 2011Q1

REPORT INFORMATION
  Report Type: 
  Country: None (occurrence: None)
  Receive Date: 20110322
  Receipt Date: 20110308
  Transmission Date: 20110831
  Serious: Yes (Hospitalization, Other)
  Sender: FDA-Public Use
  Company Number: JP-PFIZER INC-2011022115

PATIENT
  Age: 72 Year
  Sex: Female

DRUGS (15)
  1. SEIBULE [Suspect]
     Indication: DIABETES MELLITUS
     Dosage: 50 MG, 2X/DAY
     Route: 065
     Dates: start: 20091113, end: 20100308
  2. DIAZEPAM [Concomitant]
     Dosage: UNK
  3. GRAMALIL [Concomitant]
     Dosage: UNK
  4. SENNOSIDE A+B CALCIUM [Concomitant]
  5. BIOFERMIN [Concomitant]
     Dosage: UNK
     Dates: start: 20100208
  6. MAGNESIUM OXIDE [Concomitant]
     Dosage: UNK
     Dates: start: 20100515
  7. PREDONINE [Suspect]
     Indication: MULTIPLE SCLEROSIS
     Dosage: UNK
     Dates: start: 19950101
  8. VESICARE [Concomitant]
     Dosage: UNK
     Dates: end: 20100309
  9. FAMOTIDINE [Concomitant]
  10. OXYGEN [Concomitant]
     Dosage: UNK
     Dates: end: 20100316
  11. SEDIEL [Concomitant]
     Dosage: UNK
  12. MITIGLINIDE [Concomitant]
     Dosage: UNK
     Dates: start: 20091030
  13. LAXOBERON [Concomitant]
     Dosage: UNK
     Dates: start: 20091101, end: 20100301
  14. LECICARBON [Concomitant]
  15. CARNACULIN [Concomitant]
     Dosage: UNK

REACTIONS (2)
  - PNEUMATOSIS INTESTINALIS [None]
  - MULTIPLE SCLEROSIS RELAPSE [None]
